FAERS Safety Report 25825287 (Version 1)
Quarter: 2025Q3

REPORT INFORMATION
  Report Type: Report from Study
  Country: CA (occurrence: CA)
  Receive Date: 20250919
  Receipt Date: 20250919
  Transmission Date: 20251021
  Serious: Yes (Hospitalization)
  Sender: ABBVIE
  Company Number: CA-ABBVIE-6463187

PATIENT
  Age: 56 Year
  Sex: Male

DRUGS (2)
  1. SKYRIZI [Suspect]
     Active Substance: RISANKIZUMAB-RZAA
     Indication: Crohn^s disease
     Route: 058
     Dates: end: 20250724
  2. IRON [Concomitant]
     Active Substance: IRON
     Indication: Product used for unknown indication

REACTIONS (7)
  - Intestinal stenosis [Unknown]
  - Intestinal obstruction [Unknown]
  - Abdominal pain [Unknown]
  - Diarrhoea [Unknown]
  - Abnormal sensation in eye [Unknown]
  - Haematochezia [Unknown]
  - Fatigue [Unknown]

NARRATIVE: CASE EVENT DATE: 20241118
